FAERS Safety Report 23331078 (Version 1)
Quarter: 2023Q4

REPORT INFORMATION
  Report Type: Spontaneous
  Country: CH (occurrence: CH)
  Receive Date: 20231222
  Receipt Date: 20231222
  Transmission Date: 20240110
  Serious: Yes (Other)
  Sender: FDA-Public Use
  Company Number: None

PATIENT
  Age: 54 Year
  Sex: Male
  Weight: 112 kg

DRUGS (53)
  1. TORSEMIDE [Suspect]
     Active Substance: TORSEMIDE
     Indication: Product used for unknown indication
     Dosage: 15 MILLIGRAM, QD (2-1-0-0)
     Route: 065
     Dates: start: 20231013
  2. MEROPENEM [Suspect]
     Active Substance: MEROPENEM
     Indication: Product used for unknown indication
     Dosage: UNK
     Route: 065
     Dates: start: 20230912, end: 20230915
  3. MEROPENEM [Suspect]
     Active Substance: MEROPENEM
     Indication: Product used for unknown indication
     Dosage: 1 GRAM
     Route: 065
     Dates: start: 20231026, end: 20231027
  4. BACTRIM [Suspect]
     Active Substance: SULFAMETHOXAZOLE\TRIMETHOPRIM
     Indication: Product used for unknown indication
     Dosage: UNK
     Route: 065
     Dates: start: 20231017, end: 20231025
  5. REMDESIVIR [Suspect]
     Active Substance: REMDESIVIR
     Indication: COVID-19
     Dosage: 100 MILLIGRAM
     Route: 065
     Dates: start: 20231023, end: 20231025
  6. CANDESARTAN CILEXETIL [Suspect]
     Active Substance: CANDESARTAN CILEXETIL
     Indication: Product used for unknown indication
     Dosage: 16 MILLIGRAM
     Route: 065
     Dates: start: 20231018
  7. AMLODIPINE [Suspect]
     Active Substance: AMLODIPINE BESYLATE
     Indication: Product used for unknown indication
     Dosage: 5 MILLIGRAM
     Route: 065
     Dates: start: 20231017, end: 20231018
  8. AMLODIPINE [Suspect]
     Active Substance: AMLODIPINE BESYLATE
     Dosage: 10 MILLIGRAM
     Route: 065
     Dates: start: 20231019
  9. ENOXAPARIN SODIUM [Suspect]
     Active Substance: ENOXAPARIN SODIUM
     Indication: Product used for unknown indication
     Dosage: 40 MILLIGRAM
     Route: 065
     Dates: start: 20231020
  10. CLONIDINE [Suspect]
     Active Substance: CLONIDINE
     Indication: Product used for unknown indication
     Dosage: 150 MICROGRAM
     Route: 065
     Dates: start: 20230921, end: 20230921
  11. CLONIDINE [Suspect]
     Active Substance: CLONIDINE
     Dosage: 150 MICROGRAM
     Route: 065
     Dates: start: 20231028
  12. CEFTRIAXONE [Concomitant]
     Active Substance: CEFTRIAXONE\CEFTRIAXONE SODIUM
     Dosage: UNK
     Route: 065
     Dates: start: 20230911, end: 20230912
  13. VANCOCIN [Concomitant]
     Active Substance: VANCOMYCIN HYDROCHLORIDE
     Dosage: 500 MILLIGRAM
     Route: 042
     Dates: start: 20230912, end: 20230914
  14. CEFEPIME [Concomitant]
     Active Substance: CEFEPIME HYDROCHLORIDE
     Dosage: 2 GRAM
     Route: 065
     Dates: start: 20231027
  15. TACROLIMUS [Concomitant]
     Active Substance: TACROLIMUS
     Indication: Factor VIII deficiency
     Dosage: UNK
     Route: 065
  16. METHADONE HYDROCHLORIDE [Concomitant]
     Active Substance: METHADONE HYDROCHLORIDE
     Indication: Substance dependence
     Dosage: 5 MG/1 ML
     Route: 065
  17. METHADONE HYDROCHLORIDE [Concomitant]
     Active Substance: METHADONE HYDROCHLORIDE
     Dosage: 5 MG/1 ML
     Route: 065
  18. METHADONE HYDROCHLORIDE [Concomitant]
     Active Substance: METHADONE HYDROCHLORIDE
     Dosage: 10 MG/1 ML
     Route: 065
     Dates: start: 20230912, end: 20230924
  19. BECOZYM-F [Concomitant]
     Dosage: UNK
     Route: 065
     Dates: start: 20230912
  20. METAMIZOLE [Concomitant]
     Active Substance: METAMIZOLE
     Dosage: 1000 MILLIGRAM
     Route: 065
     Dates: start: 20230917, end: 20231030
  21. PALLADONE [Concomitant]
     Active Substance: HYDROMORPHONE HYDROCHLORIDE
     Dosage: 80 MILLIGRAM
     Route: 065
     Dates: start: 20230917
  22. HYDROMORPHONE [Concomitant]
     Active Substance: HYDROMORPHONE
     Dosage: 2.6 MILLIGRAM, PRN
     Route: 065
     Dates: start: 20230917
  23. FOLIC ACID [Concomitant]
     Active Substance: FOLIC ACID
     Dosage: 5 MILLIGRAM
     Route: 065
     Dates: start: 20230920
  24. Dormicum [Concomitant]
     Dosage: 7.5 MILLIGRAM
     Route: 065
     Dates: start: 20230925
  25. ADVATE [Concomitant]
     Active Substance: ANTIHEMOPHILIC FACTOR, HUMAN RECOMBINANT
     Dosage: 2000 INTERNATIONAL UNIT
     Route: 065
     Dates: start: 20230919
  26. ADVATE [Concomitant]
     Active Substance: ANTIHEMOPHILIC FACTOR, HUMAN RECOMBINANT
     Dosage: 1500 INTERNATIONAL UNIT
     Route: 065
     Dates: start: 20230921
  27. ADVATE [Concomitant]
     Active Substance: ANTIHEMOPHILIC FACTOR, HUMAN RECOMBINANT
     Dosage: 1000 INTERNATIONAL UNIT
     Route: 065
     Dates: start: 20230917, end: 20231027
  28. NACL B.BRAUN [Concomitant]
     Dosage: (50)
     Route: 065
     Dates: start: 20230919
  29. TRANEXAMIC ACID [Concomitant]
     Active Substance: TRANEXAMIC ACID
     Dosage: 500 MG/5 ML
     Route: 065
     Dates: start: 20230924, end: 20230927
  30. TRANEXAMIC ACID [Concomitant]
     Active Substance: TRANEXAMIC ACID
     Dosage: 500 MG/5 ML
     Route: 065
     Dates: start: 20230929, end: 20231017
  31. TRANEXAMIC ACID [Concomitant]
     Active Substance: TRANEXAMIC ACID
     Dosage: 500 MG/5 ML
     Route: 065
     Dates: start: 20231027
  32. HEMLIBRA [Concomitant]
     Active Substance: EMICIZUMAB-KXWH
     Indication: Factor VIII deficiency
     Dosage: 150 MG/1 ML
     Route: 058
     Dates: start: 20230912
  33. HEMLIBRA [Concomitant]
     Active Substance: EMICIZUMAB-KXWH
     Dosage: 105 MG/ 0.7 ML
     Route: 058
     Dates: start: 20231004, end: 20231004
  34. HEMLIBRA [Concomitant]
     Active Substance: EMICIZUMAB-KXWH
     Dosage: 60 MG/0.4 ML
     Route: 058
     Dates: start: 20231004, end: 20231004
  35. NOVORAPID [Concomitant]
     Active Substance: INSULIN ASPART
     Dosage: 100 INTERNATIONAL UNIT
     Route: 065
     Dates: start: 20230923
  36. LANTUS [Concomitant]
     Active Substance: INSULIN GLARGINE
     Dosage: 100 INTERNATIONAL UNIT
     Route: 065
     Dates: start: 20230923
  37. DOMPERIDONE [Concomitant]
     Active Substance: DOMPERIDONE
     Dosage: UNK UNK, PRN
     Route: 065
     Dates: start: 20230912
  38. VALVERDE SCHLAF [Concomitant]
     Dosage: UNK UNK, PRN
     Route: 065
     Dates: start: 20230912
  39. SODIUM PICOSULFATE [Concomitant]
     Active Substance: SODIUM PICOSULFATE
     Dosage: UNK UNK, PRN
     Route: 065
     Dates: start: 20230919, end: 20231005
  40. LAXIPEG [Concomitant]
     Dosage: 10 GRAM, PRN
     Route: 065
     Dates: start: 20230912
  41. HERBALS [Concomitant]
     Active Substance: HERBALS
     Dosage: UNK UNK, PRN
     Route: 065
     Dates: start: 20231027
  42. DAFALGAN [Concomitant]
     Active Substance: ACETAMINOPHEN
     Dosage: 500 MILLIGRAM
     Route: 065
     Dates: start: 20230913, end: 20231027
  43. DAFALGAN [Concomitant]
     Active Substance: ACETAMINOPHEN
     Dosage: 500 MILLIGRAM, PRN
     Route: 065
     Dates: start: 20231029
  44. DAFALGAN [Concomitant]
     Active Substance: ACETAMINOPHEN
     Dosage: 1 GRAM
     Route: 065
     Dates: start: 20231015, end: 20231030
  45. ONDANSETRON [Concomitant]
     Active Substance: ONDANSETRON
     Dosage: UNK UNK, PRN
     Route: 065
     Dates: start: 20231001
  46. Imazol [Concomitant]
     Dosage: UNK
     Route: 065
     Dates: start: 20231012, end: 20231016
  47. Heparinum [Concomitant]
     Dosage: 20000 INTERNATIONAL UNIT
     Route: 065
     Dates: start: 20230917, end: 20231020
  48. ARANESP [Concomitant]
     Active Substance: DARBEPOETIN ALFA
     Dosage: 20 MICROGRAM
     Route: 065
     Dates: start: 20230920, end: 20231002
  49. NEXIUM [Concomitant]
     Active Substance: ESOMEPRAZOLE MAGNESIUM
     Dosage: 40 MILLIGRAM
     Route: 065
     Dates: start: 20230912, end: 20231005
  50. Telebrix [Concomitant]
     Dosage: UNK
     Route: 065
     Dates: start: 20230920, end: 20231005
  51. THIAMINE HYDROCHLORIDE [Concomitant]
     Active Substance: THIAMINE HYDROCHLORIDE
     Dosage: 500 MILLIGRAM
     Route: 065
     Dates: start: 20230912, end: 20230917
  52. Temesta [Concomitant]
     Dosage: 1 GRAM
     Route: 065
     Dates: start: 20230921, end: 20230921
  53. KONAKION [Concomitant]
     Active Substance: PHYTONADIONE
     Dosage: 10 MG/1 ML
     Route: 048
     Dates: start: 20230924, end: 20230927

REACTIONS (1)
  - Liver disorder [Not Recovered/Not Resolved]
